FAERS Safety Report 24459377 (Version 1)
Quarter: 2024Q4

REPORT INFORMATION
  Report Type: Spontaneous
  Country: US (occurrence: US)
  Receive Date: 20241018
  Receipt Date: 20241018
  Transmission Date: 20250115
  Serious: No
  Sender: ROCHE
  Company Number: US-ROCHE-3538399

PATIENT
  Age: 1 Week
  Sex: Male

DRUGS (14)
  1. RITUXIMAB [Suspect]
     Active Substance: RITUXIMAB
     Indication: Epstein-Barr virus infection
     Route: 065
  2. RUXOLITINIB [Suspect]
     Active Substance: RUXOLITINIB
     Indication: Graft versus host disease
     Route: 048
  3. ABATACEPT [Suspect]
     Active Substance: ABATACEPT
     Indication: Graft versus host disease
     Route: 065
  4. AMPICILLIN [Concomitant]
     Active Substance: AMPICILLIN
  5. GENTAMICIN [Concomitant]
     Active Substance: GENTAMICIN
  6. ACYCLOVIR [Concomitant]
     Active Substance: ACYCLOVIR
  7. VANCOMYCIN [Concomitant]
     Active Substance: VANCOMYCIN
  8. CEFEPIME [Concomitant]
     Active Substance: CEFEPIME HYDROCHLORIDE
  9. PENTAMIDINE [Concomitant]
     Active Substance: PENTAMIDINE
  10. FLUCONAZOLE [Concomitant]
     Active Substance: FLUCONAZOLE
  11. ALEMTUZUMAB [Concomitant]
     Active Substance: ALEMTUZUMAB
  12. FLUDARABINE [Concomitant]
     Active Substance: FLUDARABINE PHOSPHATE
  13. MELPHALAN [Concomitant]
     Active Substance: MELPHALAN
  14. CYCLOPHOSPHAMIDE [Concomitant]
     Active Substance: CYCLOPHOSPHAMIDE

REACTIONS (1)
  - Immune system disorder [Unknown]
